FAERS Safety Report 7554048-9 (Version None)
Quarter: 2011Q2

REPORT INFORMATION
  Report Type: 
  Country: None (occurrence: None)
  Receive Date: 20110614
  Receipt Date: 20110614
  Transmission Date: 20111010
  Serious: Yes (Hospitalization)
  Sender: FDA-Public Use
  Company Number: None

PATIENT
  Sex: Female
  Weight: 90.7194 kg

DRUGS (1)
  1. ALLI [Suspect]
     Indication: WEIGHT
     Dosage: 60MG ORLISTAT/ALLI 2 TIMES A DAY PO
     Route: 048
     Dates: start: 20080501, end: 20080601

REACTIONS (3)
  - PANCREATITIS [None]
  - COLITIS ULCERATIVE [None]
  - ILEOSTOMY [None]
